FAERS Safety Report 19336986 (Version 1)
Quarter: 2021Q2

REPORT INFORMATION
  Report Type: Report from Study
  Country: US (occurrence: US)
  Receive Date: 20210530
  Receipt Date: 20210530
  Transmission Date: 20210717
  Serious: Yes (Other)
  Sender: FDA-Public Use
  Company Number: US-UCBSA-2021025057

PATIENT
  Age: 0 Year
  Sex: Male
  Weight: 2.77 kg

DRUGS (14)
  1. VITAMIN B6 [Concomitant]
     Active Substance: PYRIDOXINE HYDROCHLORIDE
     Indication: MORNING SICKNESS
     Dosage: 50 MILLIGRAM, 2X/DAY (BID)
     Route: 064
     Dates: start: 20201031, end: 20210428
  2. ELETRIPTAN HYDROBROMIDE. [Concomitant]
     Active Substance: ELETRIPTAN HYDROBROMIDE
     Indication: MIGRAINE
     Dosage: 40 MILLIGRAM, ONCE DAILY (QD)
     Route: 064
     Dates: start: 20201025, end: 20201025
  3. TYLENOL [Concomitant]
     Active Substance: ACETAMINOPHEN
     Indication: PAIN
     Dosage: 1000 MILLIGRAM
     Route: 064
     Dates: start: 20200902, end: 20210303
  4. UNISOM SLEEPMELTS [Concomitant]
     Active Substance: DIPHENHYDRAMINE HYDROCHLORIDE
     Indication: VOMITING
     Dosage: 25 MILLIGRAM, ONCE DAILY (QD)
     Route: 064
     Dates: start: 20201031, end: 20210428
  5. FLU VACCINE VII [Concomitant]
     Active Substance: INFLUENZA VIRUS VACCINE
     Indication: PRODUCT USED FOR UNKNOWN INDICATION
     Dosage: 1 SHOT A DAY
     Route: 064
     Dates: start: 20200902
  6. PEPCID [Concomitant]
     Active Substance: FAMOTIDINE
     Indication: GASTROOESOPHAGEAL REFLUX DISEASE
     Dosage: 10 MILLIGRAM, 2X/DAY (BID)
     Route: 064
     Dates: start: 20210215, end: 20210428
  7. PROPRANOLOL [Concomitant]
     Active Substance: PROPRANOLOL HYDROCHLORIDE
     Indication: MIGRAINE PROPHYLAXIS
     Dosage: 40 MILLIGRAM, 2X/DAY (BID)
     Route: 064
     Dates: start: 20200902, end: 20210428
  8. HYDROXYCHLOROQUINE SULFATE. [Concomitant]
     Active Substance: HYDROXYCHLOROQUINE SULFATE
     Indication: JUVENILE IDIOPATHIC ARTHRITIS
     Dosage: 200MG X 3.5WEEK
     Route: 064
     Dates: start: 20200902, end: 20210428
  9. PROCHLORPERAZINE. [Concomitant]
     Active Substance: PROCHLORPERAZINE
     Indication: MORNING SICKNESS
     Dosage: 10MG X 3
     Route: 064
     Dates: start: 20201221, end: 20210130
  10. TDAP [Concomitant]
     Active Substance: TETANUS TOXOID, REDUCED DIPHTHERIA TOXOID AND ACELLULAR PERTUSSIS VACCINE ADSORBED, TDAP
     Indication: PRODUCT USED FOR UNKNOWN INDICATION
     Dosage: 1 SHOT A DAY
     Route: 064
     Dates: start: 20210407, end: 20210407
  11. HYDROXYCHLOROQUINE SULFATE. [Concomitant]
     Active Substance: HYDROXYCHLOROQUINE SULFATE
     Indication: RHEUMATOID ARTHRITIS
     Dosage: 400MG X 3.5WEEK
     Route: 064
     Dates: start: 20200902, end: 20210428
  12. NORCO [Concomitant]
     Active Substance: ACETAMINOPHEN\HYDROCODONE BITARTRATE
     Indication: NEPHROLITHIASIS
     Dosage: 1PILL X 4
     Route: 064
     Dates: start: 20210105, end: 20210110
  13. PRENATAL VITAMINS [MINERALS NOS;VITAMINS NOS] [Concomitant]
     Active Substance: MINERALS\VITAMINS
     Indication: PRODUCT USED FOR UNKNOWN INDICATION
     Dosage: 1 PILL X DAY
     Route: 064
     Dates: start: 20210315, end: 20210428
  14. CERTOLIZUMAB PEGOL RA [Suspect]
     Active Substance: CERTOLIZUMAB PEGOL
     Indication: JUVENILE IDIOPATHIC ARTHRITIS
     Dosage: 200 MILLIGRAM, WEEKLY (QW)
     Route: 064
     Dates: start: 20200902, end: 20210428

REACTIONS (3)
  - Hypoxia [Unknown]
  - Ischaemia [Unknown]
  - Maternal exposure before pregnancy [Unknown]

NARRATIVE: CASE EVENT DATE: 20200902
